FAERS Safety Report 6685894-1 (Version None)
Quarter: 2010Q2

REPORT INFORMATION
  Report Type: 
  Country: None (occurrence: None)
  Receive Date: 20100419
  Receipt Date: 20100412
  Transmission Date: 20101027
  Serious: Yes (Other)
  Sender: FDA-Public Use
  Company Number: US-BAYER-201011480BCC

PATIENT
  Age: 55 Year
  Sex: Male
  Weight: 78 kg

DRUGS (11)
  1. ALEVE [Suspect]
     Indication: ARTHRITIS
     Dosage: TOTAL DAILY DOSE: 220 MG  UNIT DOSE: 220 MG
     Route: 048
     Dates: start: 20100118, end: 20100205
  2. TYLENOL-500 [Concomitant]
     Route: 065
  3. CORTISONE [Concomitant]
     Route: 065
     Dates: start: 20100118
  4. WALGREEN'S ASA 325 MG [Concomitant]
  5. IRON VITAMIN [Concomitant]
  6. VITAMIN E [Concomitant]
  7. MAGNESIUM [Concomitant]
  8. VITAMIN B6 [Concomitant]
  9. MAALOX EXTRA STRENGH [Concomitant]
  10. TUMS [Concomitant]
  11. OMEPRAZOLE [Concomitant]
     Indication: DYSPEPSIA
     Route: 065

REACTIONS (3)
  - ABDOMINAL PAIN UPPER [None]
  - DYSURIA [None]
  - GASTRIC HAEMORRHAGE [None]
